FAERS Safety Report 7762683-8 (Version None)
Quarter: 2011Q3

REPORT INFORMATION
  Report Type: 
  Country: None (occurrence: None)
  Receive Date: 20110825
  Receipt Date: 20110627
  Transmission Date: 20111222
  Serious: No
  Sender: FDA-Public Use
  Company Number: 330754

PATIENT
  Age: 63 Year
  Sex: Male

DRUGS (2)
  1. MAGNESIUM (MAGNESIUM) [Concomitant]
  2. VICTOZA [Suspect]
     Indication: TYPE 2 DIABETES MELLITUS
     Dosage: 1.2 MG, QD, SUBCUTANEOUS; 1.8 MG, QD, SUBCUTANEOUS
     Route: 058

REACTIONS (5)
  - NAUSEA [None]
  - ANXIETY [None]
  - ENERGY INCREASED [None]
  - WEIGHT DECREASED [None]
  - DIARRHOEA [None]
